FAERS Safety Report 19969145 (Version 2)
Quarter: 2021Q4

REPORT INFORMATION
  Report Type: Spontaneous
  Country: US (occurrence: None)
  Receive Date: 20211019
  Receipt Date: 20211123
  Transmission Date: 20220303
  Serious: Yes (Other)
  Sender: FDA-Public Use
  Company Number: 2021A771635

PATIENT
  Age: 1020 Month
  Sex: Female
  Weight: 59.4 kg

DRUGS (4)
  1. IMFINZI [Suspect]
     Active Substance: DURVALUMAB
     Indication: Non-small cell lung cancer
     Route: 041
     Dates: start: 202108, end: 20210923
  2. COVID BOOSTER [Concomitant]
  3. TAXOL CARBOPLATIN [Concomitant]
  4. ALBUTEROL [Concomitant]
     Active Substance: ALBUTEROL

REACTIONS (7)
  - Metastases to pleura [Not Recovered/Not Resolved]
  - Metastases to lymph nodes [Not Recovered/Not Resolved]
  - Pneumonitis [Recovering/Resolving]
  - Fatigue [Recovering/Resolving]
  - Asthma [Recovering/Resolving]
  - Insomnia [Recovering/Resolving]
  - Chest X-ray abnormal [Unknown]

NARRATIVE: CASE EVENT DATE: 20210801
